FAERS Safety Report 8958990 (Version 1)
Quarter: 2012Q4

REPORT INFORMATION
  Report Type: 
  Country: BR (occurrence: BR)
  Receive Date: 20121212
  Receipt Date: 20121212
  Transmission Date: 20130627
  Serious: Yes (Other)
  Sender: FDA-Public Use
  Company Number: PHHY2012BR113899

PATIENT

DRUGS (5)
  1. FORASEQ [Suspect]
     Indication: CHRONIC OBSTRUCTIVE PULMONARY DISEASE
     Dosage: 12/200 mcg twice a day
  2. FORASEQ [Suspect]
     Dosage: 12/200 mcg  once a daily
     Dates: start: 201210
  3. OMEPRAZOLE [Suspect]
     Indication: GASTROOESOPHAGEAL REFLUX DISEASE
     Dosage: 1 or 2 tablet (20 mg) as needed
     Dates: start: 2003
  4. DORFLEX [Concomitant]
     Indication: CHEST PAIN
  5. TORSILAX [Concomitant]
     Indication: CHEST PAIN

REACTIONS (14)
  - Asthma [Not Recovered/Not Resolved]
  - Bronchitis [Not Recovered/Not Resolved]
  - Cough [Unknown]
  - Dyspnoea [Not Recovered/Not Resolved]
  - Memory impairment [Unknown]
  - Breast pain [Recovering/Resolving]
  - Diarrhoea [Unknown]
  - Gastrooesophageal reflux disease [Not Recovered/Not Resolved]
  - Condition aggravated [Not Recovered/Not Resolved]
  - Pain [Recovering/Resolving]
  - Vomiting [Unknown]
  - Confusional state [Unknown]
  - Chest pain [Not Recovered/Not Resolved]
  - Muscle spasms [Unknown]
